FAERS Safety Report 6307642-7 (Version None)
Quarter: 2009Q3

REPORT INFORMATION
  Report Type: 
  Country: None (occurrence: None)
  Receive Date: 20090813
  Receipt Date: 20090803
  Transmission Date: 20100115
  Serious: Yes (Life-Threatening, Hospitalization, Other)
  Sender: FDA-Public Use
  Company Number: NZ-ELI_LILLY_AND_COMPANY-NZ200907000287

PATIENT
  Sex: Female

DRUGS (4)
  1. OLANZAPINE [Suspect]
     Indication: BIPOLAR DISORDER
     Dosage: 20 MG, AS NEEDED
     Route: 048
     Dates: start: 20040101
  2. OLANZAPINE [Suspect]
     Dosage: 20 MG, 2/D
     Route: 048
     Dates: start: 20051101
  3. OLANZAPINE [Suspect]
     Dosage: 30 MG, DAILY (1/D)
     Route: 048
  4. LITHIUM CARBONATE [Concomitant]
     Indication: BIPOLAR DISORDER
     Dosage: 1250 MG, UNK
     Dates: end: 20090601

REACTIONS (4)
  - DIABETES INSIPIDUS [None]
  - DIABETES MELLITUS [None]
  - DIABETIC KETOACIDOSIS [None]
  - OVERDOSE [None]
